FAERS Safety Report 23485781 (Version 1)
Quarter: 2024Q1

REPORT INFORMATION
  Report Type: Spontaneous
  Country: US (occurrence: US)
  Receive Date: 20240206
  Receipt Date: 20240206
  Transmission Date: 20240410
  Serious: No
  Sender: FDA-Public Use
  Company Number: US-GSK-US2024012472

PATIENT
  Age: 5 Year
  Sex: Male

DRUGS (1)
  1. ADVAIR HFA [Suspect]
     Active Substance: FLUTICASONE PROPIONATE\SALMETEROL XINAFOATE
     Indication: Asthma
     Dosage: 2 PUFF(S), BID
     Dates: start: 20230801, end: 20240121

REACTIONS (4)
  - Perioral dermatitis [Not Recovered/Not Resolved]
  - Skin disorder [Unknown]
  - Dermatitis [Unknown]
  - Erythema [Unknown]

NARRATIVE: CASE EVENT DATE: 20230901
